FAERS Safety Report 9276319 (Version 3)
Quarter: 2013Q1

REPORT INFORMATION
  Report Type: Spontaneous
  Country: US (occurrence: None)
  Receive Date: 20121012
  Receipt Date: 20121031
  Transmission Date: 20140127
  Serious: Yes (Hospitalization)
  Sender: FDA-Public Use
  Company Number: ACO_32199_2012

PATIENT
  Age: 40 Year
  Sex: Male
  Weight: 145.1 kg

DRUGS (9)
  1. AMPYRA [Suspect]
     Indication: GAIT DISTURBANCE
     Route: 048
     Dates: start: 201207, end: 2012
  2. NUVIGIL (ARMODAFINIL) [Concomitant]
  3. COPAXONE (GLATIRAMER ACETATE) [Concomitant]
  4. BACLOFEN (BACLOFEN) (BACLOFEN) [Concomitant]
  5. NEURONTIN (GABAPENTIN) [Concomitant]
  6. NORCO (HYDROCODONE BITARTRATE, PARACETAMOL) [Concomitant]
  7. ATIVAN (LORAZEPAM) [Concomitant]
  8. DETROL (TOLTERODINE I-TARTRATE) [Concomitant]
  9. DICLOFENAC (DICLOFENAC POTASSIUM) [Concomitant]

REACTIONS (3)
  - Convulsion [None]
  - Cerebrovascular accident [None]
  - Night sweats [None]
